FAERS Safety Report 26156877 (Version 1)
Quarter: 2025Q4

REPORT INFORMATION
  Report Type: Spontaneous
  Country: EU (occurrence: EU)
  Receive Date: 20251215
  Receipt Date: 20251215
  Transmission Date: 20260117
  Serious: Yes (Hospitalization)
  Sender: ACCORD
  Company Number: EU-MLMSERVICE-20251201-PI728074-00336-3

PATIENT
  Age: 82 Year
  Sex: Female

DRUGS (2)
  1. ZOLEDRONIC ACID [Suspect]
     Active Substance: ZOLEDRONIC ACID
     Indication: Metastases to bone
     Dates: start: 202101, end: 202406
  2. ZOLEDRONIC ACID [Suspect]
     Active Substance: ZOLEDRONIC ACID
     Indication: Breast cancer
     Dates: start: 202101, end: 202406

REACTIONS (8)
  - Osteonecrosis of jaw [Recovered/Resolved]
  - Oral cavity fistula [Recovered/Resolved]
  - Impaired healing [Recovered/Resolved]
  - Wound dehiscence [Recovered/Resolved]
  - Streptococcal infection [Recovered/Resolved]
  - Bacterial infection [Recovered/Resolved]
  - Porphyromonas infection [Recovered/Resolved]
  - Parvimonas micra infection [Recovered/Resolved]

NARRATIVE: CASE EVENT DATE: 20231101
